FAERS Safety Report 19658691 (Version 2)
Quarter: 2022Q1

REPORT INFORMATION
  Report Type: Spontaneous
  Country: US (occurrence: US)
  Receive Date: 20210804
  Receipt Date: 20220221
  Transmission Date: 20220424
  Serious: Yes (Other)
  Sender: FDA-Public Use
  Company Number: US-GILEAD-2021-0542308

PATIENT
  Age: 57 Year
  Sex: Male
  Weight: 90.703 kg

DRUGS (31)
  1. ATRIPLA [Suspect]
     Active Substance: EFAVIRENZ\EMTRICITABINE\TENOFOVIR DISOPROXIL FUMARATE
     Indication: HIV infection
     Dosage: UNK
     Route: 048
     Dates: start: 2014
  2. ATRIPLA [Suspect]
     Active Substance: EFAVIRENZ\EMTRICITABINE\TENOFOVIR DISOPROXIL FUMARATE
     Dosage: UNK
     Route: 048
     Dates: start: 20130506, end: 201803
  3. TRUVADA [Suspect]
     Active Substance: EMTRICITABINE\TENOFOVIR DISOPROXIL FUMARATE
     Indication: HIV infection
     Dosage: UNK
     Route: 048
     Dates: start: 201803, end: 201807
  4. ODEFSEY [Concomitant]
     Active Substance: EMTRICITABINE\RILPIVIRINE HYDROCHLORIDE\TENOFOVIR ALAFENAMIDE FUMARATE
  5. SUSTIVA [Concomitant]
     Active Substance: EFAVIRENZ
  6. VALSARTAN [Concomitant]
     Active Substance: VALSARTAN
  7. VENLAFAXINE [Concomitant]
     Active Substance: VENLAFAXINE HYDROCHLORIDE
  8. ATORVASTATIN [Concomitant]
     Active Substance: ATORVASTATIN
  9. PENICILLIN [Concomitant]
     Active Substance: PENICILLIN
  10. HYDROCODONE [Concomitant]
     Active Substance: HYDROCODONE
  11. RANITIDINE [Concomitant]
     Active Substance: RANITIDINE
  12. GABAPENTIN [Concomitant]
     Active Substance: GABAPENTIN
  13. GEMFIBROZIL [Concomitant]
     Active Substance: GEMFIBROZIL
  14. VASCEPA [Concomitant]
     Active Substance: ICOSAPENT ETHYL
  15. AMBIEN [Concomitant]
     Active Substance: ZOLPIDEM TARTRATE
  16. ALPRAZOLAM [Concomitant]
     Active Substance: ALPRAZOLAM
  17. LOVAZA [Concomitant]
     Active Substance: OMEGA-3-ACID ETHYL ESTERS
  18. BETAMETHASONE\CLOTRIMAZOLE [Concomitant]
     Active Substance: BETAMETHASONE\CLOTRIMAZOLE
  19. OXYCODONE [Concomitant]
     Active Substance: OXYCODONE
  20. PREDNISONE [Concomitant]
     Active Substance: PREDNISONE
  21. TRAMADOL [Concomitant]
     Active Substance: TRAMADOL
  22. METRONIDAZOLE [Concomitant]
     Active Substance: METRONIDAZOLE
  23. LOSARTAN [Concomitant]
     Active Substance: LOSARTAN
  24. HYDROXYZINE [Concomitant]
     Active Substance: HYDROXYZINE HYDROCHLORIDE
  25. MIRTAZAPINE [Concomitant]
     Active Substance: MIRTAZAPINE
  26. ZOLPIDEM [Concomitant]
     Active Substance: ZOLPIDEM TARTRATE
  27. QUETIAPINE FUMARATE [Concomitant]
     Active Substance: QUETIAPINE FUMARATE
  28. PHENAZOPYRIDINE [Concomitant]
     Active Substance: PHENAZOPYRIDINE
  29. TRAZODONE [Concomitant]
     Active Substance: TRAZODONE HYDROCHLORIDE
  30. ESCITALOPRAM [Concomitant]
     Active Substance: ESCITALOPRAM OXALATE
  31. TRIMETHADIONE [Concomitant]
     Active Substance: TRIMETHADIONE

REACTIONS (7)
  - Chronic kidney disease [Not Recovered/Not Resolved]
  - Acute kidney injury [Not Recovered/Not Resolved]
  - Pain [Not Recovered/Not Resolved]
  - Emotional distress [Not Recovered/Not Resolved]
  - Anxiety [Not Recovered/Not Resolved]
  - Anhedonia [Not Recovered/Not Resolved]
  - Asthenia [Not Recovered/Not Resolved]

NARRATIVE: CASE EVENT DATE: 20180309
